FAERS Safety Report 5329893-0 (Version None)
Quarter: 2007Q2

REPORT INFORMATION
  Report Type: 
  Country: None (occurrence: None)
  Receive Date: 20070517
  Receipt Date: 20070517
  Transmission Date: 20071010
  Serious: No
  Sender: FDA-Public Use
  Company Number: None

PATIENT
  Sex: Female
  Weight: 69 kg

DRUGS (3)
  1. CYCLOPHOSPHAMIDE [Suspect]
     Dosage: 1992 MG
  2. VINCRISTINE SULFATE [Suspect]
     Dosage: 3 MG
     Dates: end: 20070503
  3. L-ASPARAGINASE [Suspect]
     Dosage: 29880 UNIT
     Dates: end: 20070506

REACTIONS (6)
  - ABDOMINAL PAIN [None]
  - BLOOD ALBUMIN DECREASED [None]
  - HYPOTENSION [None]
  - NEUTROPENIC SEPSIS [None]
  - RESPIRATORY FAILURE [None]
  - SEPTIC EMBOLUS [None]
